FAERS Safety Report 11990684 (Version 1)
Quarter: 2016Q1

REPORT INFORMATION
  Report Type: Spontaneous
  Country: US (occurrence: US)
  Receive Date: 20160202
  Receipt Date: 20160202
  Transmission Date: 20160526
  Serious: No
  Sender: FDA-Public Use
  Company Number: US-GALDERMA-US15006777

PATIENT
  Age: 15 Year
  Sex: Female

DRUGS (3)
  1. EPIDUO [Suspect]
     Active Substance: ADAPALENE\BENZOYL PEROXIDE
     Indication: PRODUCT USED FOR UNKNOWN INDICATION
     Dosage: 0.1% / 2.5%
     Route: 061
     Dates: start: 201508
  2. CETAPHIL DERMACONTROL FOAM WASH [Suspect]
     Active Substance: COSMETICS
     Indication: PRODUCT USED FOR UNKNOWN INDICATION
     Dates: start: 201508
  3. CETAPHIL DERMACONTROL SPF 30 [Suspect]
     Active Substance: AVOBENZONE\OCTISALATE\OCTOCRYLENE
     Indication: PRODUCT USED FOR UNKNOWN INDICATION
     Route: 061
     Dates: start: 201508

REACTIONS (4)
  - Pain of skin [Unknown]
  - Skin burning sensation [Unknown]
  - Dry skin [Unknown]
  - Skin fragility [Unknown]

NARRATIVE: CASE EVENT DATE: 201508
